FAERS Safety Report 6922882-1 (Version None)
Quarter: 2010Q3

REPORT INFORMATION
  Report Type: 
  Country: None (occurrence: None)
  Receive Date: 20100811
  Receipt Date: 20100730
  Transmission Date: 20110219
  Serious: Yes (Other)
  Sender: FDA-Public Use
  Company Number: B0668919A

PATIENT
  Age: 11 Year
  Sex: Male

DRUGS (3)
  1. LAMIVUDINE [Suspect]
     Indication: HIV INFECTION
  2. ZIDOVUDINE [Suspect]
     Indication: HIV INFECTION
  3. EFAVIRENZ [Suspect]
     Indication: HIV INFECTION

REACTIONS (3)
  - BASEDOW'S DISEASE [None]
  - GOITRE [None]
  - PNEUMONIA [None]
